FAERS Safety Report 24676585 (Version 1)
Quarter: 2024Q4

REPORT INFORMATION
  Report Type: Spontaneous
  Country: ES (occurrence: ES)
  Receive Date: 20241128
  Receipt Date: 20241128
  Transmission Date: 20250115
  Serious: Yes (Death, Hospitalization)
  Sender: TEVA
  Company Number: None

PATIENT
  Age: 68 Year
  Sex: Male
  Weight: 58.4 kg

DRUGS (3)
  1. ETOPOSIDE [Suspect]
     Active Substance: ETOPOSIDE
     Indication: Lung neoplasm malignant
     Dosage: FIRST AND ONLY CYCLE 160MG (100MG/M2): ETOPOSIDE (518A)
     Route: 042
     Dates: start: 20240625, end: 20240625
  2. TECENTRIQ [Suspect]
     Active Substance: ATEZOLIZUMAB
     Indication: Lung neoplasm malignant
     Dosage: TIME INTERVAL: TOTAL: FIRST AND ONLY CYCLE 1200MG (1200MG/TOTAL)
     Route: 042
     Dates: start: 20240625, end: 20240625
  3. CARBOPLATIN [Suspect]
     Active Substance: CARBOPLATIN
     Indication: Lung neoplasm malignant
     Dosage: FIRST AND ONLY CYCLE 410MG (5.01MG/TOTAL): CARBOPLATIN (2323A)
     Route: 042
     Dates: start: 20240625, end: 20240625

REACTIONS (4)
  - Agranulocytosis [Fatal]
  - COVID-19 pneumonia [Fatal]
  - Respiratory failure [Fatal]
  - Pneumonitis [Fatal]

NARRATIVE: CASE EVENT DATE: 20240701
